FAERS Safety Report 8567104-3 (Version None)
Quarter: 2012Q3

REPORT INFORMATION
  Report Type: 
  Country: None (occurrence: None)
  Receive Date: 20120803
  Receipt Date: 20111216
  Transmission Date: 20120928
  Serious: No
  Sender: FDA-Public Use
  Company Number: US-ABBOTT-11P-163-0885198-00

PATIENT
  Sex: Female
  Weight: 68.1 kg

DRUGS (6)
  1. METOPROLOL TARTRATE [Concomitant]
     Indication: HYPERTENSION
  2. IMIPRAMINE HCL [Concomitant]
     Indication: DEPRESSION
  3. CITRUCEL [Concomitant]
     Indication: CONSTIPATION
  4. OMEPRAZOLE [Concomitant]
     Indication: GASTROOESOPHAGEAL REFLUX DISEASE
  5. MULTI-VITAMINS [Concomitant]
     Indication: VITAMIN SUPPLEMENTATION
  6. NIASPAN [Suspect]
     Indication: BLOOD CHOLESTEROL INCREASED
     Dates: start: 20111207

REACTIONS (1)
  - CONSTIPATION [None]
